FAERS Safety Report 9522366 (Version 1)
Quarter: 2013Q3

REPORT INFORMATION
  Report Type: Spontaneous
  Country: US (occurrence: None)
  Receive Date: 20130911
  Receipt Date: 20130911
  Transmission Date: 20140515
  Serious: No
  Sender: FDA-Public Use
  Company Number: AEUSA201200440

PATIENT
  Age: 50 Year
  Sex: Male
  Weight: 95.26 kg

DRUGS (6)
  1. GAMUNEX-C (10 PCT) [Suspect]
     Indication: CHRONIC INFLAMMATORY DEMYELINATING POLYRADICULONEUROPATHY
     Route: 042
     Dates: start: 201207
  2. ALEVE [Concomitant]
  3. PARACETAMOL [Concomitant]
  4. PERCOCET /00446701/ [Concomitant]
  5. BENADRYL /00000402/ [Concomitant]
  6. CORTICOSTEROID NOS [Concomitant]

REACTIONS (3)
  - Headache [None]
  - Chronic inflammatory demyelinating polyradiculoneuropathy [None]
  - Disease recurrence [None]
